FAERS Safety Report 7244383-6 (Version None)
Quarter: 2011Q1

REPORT INFORMATION
  Report Type: 
  Country: None (occurrence: None)
  Receive Date: 20110125
  Receipt Date: 20100414
  Transmission Date: 20110831
  Serious: Yes (Other)
  Sender: FDA-Public Use
  Company Number: US-PFIZER INC-2010047857

PATIENT

DRUGS (1)
  1. ARGATROBAN [Suspect]
     Dosage: 1.1 MG/KG X MIN

REACTIONS (1)
  - INTERNATIONAL NORMALISED RATIO INCREASED [None]
